FAERS Safety Report 13732870 (Version 1)
Quarter: 2017Q3

REPORT INFORMATION
  Report Type: Spontaneous
  Country: ES (occurrence: ES)
  Receive Date: 20170707
  Receipt Date: 20170707
  Transmission Date: 20171127
  Serious: Yes (Death)
  Sender: FDA-Public Use
  Company Number: ES-FRESENIUS KABI-FK201705842

PATIENT
  Age: 78 Year
  Sex: Female

DRUGS (2)
  1. HEPARIN (MANUFACTURER UNKNOWN) [Suspect]
     Active Substance: HEPARIN SODIUM
     Indication: HAEMOSTASIS
     Route: 042
  2. DICOUMAROL [Suspect]
     Active Substance: DICUMAROL
     Indication: HAEMOSTASIS
     Route: 065

REACTIONS (3)
  - Retroperitoneal haematoma [Fatal]
  - Spontaneous haematoma [None]
  - Anaemia [Unknown]
